FAERS Safety Report 9940273 (Version 1)
Quarter: 2014Q1

REPORT INFORMATION
  Report Type: Spontaneous
  Country: US (occurrence: US)
  Receive Date: 20140303
  Receipt Date: 20140303
  Transmission Date: 20141002
  Serious: Yes (Death, Hospitalization, Other)
  Sender: FDA-Public Use
  Company Number: US-BAXTER-2014BAX010081

PATIENT
  Sex: Female

DRUGS (1)
  1. DIANEAL LOW CALCIUM [Suspect]
     Indication: RENAL FAILURE CHRONIC
     Route: 033
     Dates: end: 20140225

REACTIONS (4)
  - Convulsion [Fatal]
  - Cerebral thrombosis [Not Recovered/Not Resolved]
  - Brain death [Not Recovered/Not Resolved]
  - Cerebral haemorrhage [Unknown]
